FAERS Safety Report 9097747 (Version 2)
Quarter: 2013Q2

REPORT INFORMATION
  Report Type: Spontaneous
  Country: US (occurrence: US)
  Receive Date: 20130212
  Receipt Date: 20130510
  Transmission Date: 20140414
  Serious: Yes (Hospitalization, Other)
  Sender: FDA-Public Use
  Company Number: US-BAYER-2013-017740

PATIENT
  Age: 22 Year
  Sex: Female

DRUGS (5)
  1. YASMIN [Suspect]
     Indication: MENSTRUATION IRREGULAR
     Dosage: UNK
     Dates: start: 2003, end: 2004
  2. YAZ [Suspect]
     Dosage: UNK
     Dates: start: 2003, end: 2004
  3. OCELLA [Suspect]
     Dosage: UNK
     Dates: start: 2003, end: 2004
  4. VICODIN [Concomitant]
  5. TYLENOL [Concomitant]

REACTIONS (12)
  - Pulmonary embolism [None]
  - Deep vein thrombosis [None]
  - Thrombosis [None]
  - Injury [None]
  - Pain [None]
  - Emotional distress [None]
  - Anxiety [None]
  - General physical health deterioration [None]
  - Pain [None]
  - Abdominal pain [None]
  - Anhedonia [None]
  - Fear [None]
